FAERS Safety Report 11937021 (Version 12)
Quarter: 2019Q3

REPORT INFORMATION
  Report Type: Spontaneous
  Country: US (occurrence: US)
  Receive Date: 20160121
  Receipt Date: 20190709
  Transmission Date: 20191004
  Serious: Yes (Hospitalization, Other)
  Sender: FDA-Public Use
  Company Number: US-DSJP-DSU-2015-120153

PATIENT

DRUGS (8)
  1. BENICAR [Suspect]
     Active Substance: OLMESARTAN MEDOXOMIL
     Indication: HYPERTENSION
     Dosage: 40 MG, QD
     Dates: end: 201310
  2. BENICAR HCT [Suspect]
     Active Substance: HYDROCHLOROTHIAZIDE\OLMESARTAN MEDOXOMIL
     Indication: HYPERTENSION
     Dosage: 40/12.5MG, QD
     Dates: start: 20060101, end: 20101207
  3. BENICAR HCT [Suspect]
     Active Substance: HYDROCHLOROTHIAZIDE\OLMESARTAN MEDOXOMIL
     Dosage: 40/25MG, QD
     Dates: start: 20101207, end: 20130902
  4. BENICAR [Suspect]
     Active Substance: OLMESARTAN MEDOXOMIL
     Dosage: 20 MG, QD
     Route: 048
     Dates: start: 20131004
  5. BENICAR [Suspect]
     Active Substance: OLMESARTAN MEDOXOMIL
     Dosage: 20 MG, QD
     Route: 048
  6. TRIBENZOR [Suspect]
     Active Substance: AMLODIPINE BESYLATE\HYDROCHLOROTHIAZIDE\OLMESARTAN MEDOXOMIL
     Indication: PRODUCT USED FOR UNKNOWN INDICATION
     Dosage: 40/5/12.5MG, QD
     Dates: start: 20120101, end: 20141117
  7. BENICAR [Suspect]
     Active Substance: OLMESARTAN MEDOXOMIL
     Dosage: 40 MG, QD
     Dates: end: 20150212
  8. TRIBENZOR [Suspect]
     Active Substance: AMLODIPINE BESYLATE\HYDROCHLOROTHIAZIDE\OLMESARTAN MEDOXOMIL
     Dosage: 40/5/12.5MG, QD
     Dates: end: 20150407

REACTIONS (17)
  - Sprue-like enteropathy [Recovering/Resolving]
  - Adenoma benign [Unknown]
  - Pancytopenia [Unknown]
  - Cholecystitis chronic [Not Recovered/Not Resolved]
  - Acute kidney injury [Unknown]
  - Reactive gastropathy [Unknown]
  - Gastric cancer [Recovered/Resolved]
  - Gastric ulcer [Not Recovered/Not Resolved]
  - Urinary tract infection [Unknown]
  - Hiatus hernia [Not Recovered/Not Resolved]
  - Liver function test abnormal [Not Recovered/Not Resolved]
  - Gastrooesophageal reflux disease [Not Recovered/Not Resolved]
  - Depression [Unknown]
  - Irritable bowel syndrome [Unknown]
  - Ureteral disorder [Unknown]
  - Diverticulum intestinal [Unknown]
  - Gallbladder polyp [Recovered/Resolved]

NARRATIVE: CASE EVENT DATE: 20110719
